FAERS Safety Report 23085507 (Version 1)
Quarter: 2023Q4

REPORT INFORMATION
  Report Type: Report from Study
  Country: US (occurrence: US)
  Receive Date: 20231019
  Receipt Date: 20231019
  Transmission Date: 20240110
  Serious: Yes (Other)
  Sender: FDA-Public Use
  Company Number: US-JAZZ-2021-US-011323

PATIENT
  Sex: Female

DRUGS (5)
  1. XYREM [Suspect]
     Active Substance: SODIUM OXYBATE
     Indication: Narcolepsy
     Dosage: 4.5 GRAM, BID
     Route: 048
     Dates: start: 200902
  2. XYREM [Suspect]
     Active Substance: SODIUM OXYBATE
     Indication: Cataplexy
     Dosage: UNK
  3. XYREM [Suspect]
     Active Substance: SODIUM OXYBATE
     Indication: Somnolence
  4. TOPAMAX [Suspect]
     Active Substance: TOPIRAMATE
     Indication: Essential tremor
     Dosage: UNKNOWN DOSE
     Dates: end: 20210522
  5. PROPRANOLOL HYDROCHLORIDE [Concomitant]
     Active Substance: PROPRANOLOL HYDROCHLORIDE
     Indication: Essential tremor
     Dosage: UNK
     Dates: start: 20160208

REACTIONS (11)
  - Neoplasm malignant [Unknown]
  - Palpitations [Recovered/Resolved]
  - Limb discomfort [Recovered/Resolved]
  - Essential tremor [Unknown]
  - Paraesthesia [Unknown]
  - Dizziness [Unknown]
  - Sluggishness [Unknown]
  - Feeling abnormal [Unknown]
  - Intentional dose omission [Unknown]
  - Product administration interrupted [Unknown]
  - Intentional product use issue [Unknown]

NARRATIVE: CASE EVENT DATE: 20210101
